FAERS Safety Report 9574702 (Version 2)
Quarter: 2014Q1

REPORT INFORMATION
  Report Type: Report from Study
  Country: US (occurrence: US)
  Receive Date: 20131001
  Receipt Date: 20140114
  Transmission Date: 20141002
  Serious: Yes (Hospitalization, Other)
  Sender: FDA-Public Use
  Company Number: US-ALEXION PHARMACEUTICALS INC.-A201302429

PATIENT
  Age: 60 Year
  Sex: Male
  Weight: 72.4 kg

DRUGS (8)
  1. SOLIRIS [Suspect]
     Indication: PAROXYSMAL NOCTURNAL HAEMOGLOBINURIA
     Dosage: UNK
     Route: 042
     Dates: start: 20130515, end: 20131112
  2. ZOVIRAX [Concomitant]
     Indication: APLASTIC ANAEMIA
     Dosage: 10 ML, BID
     Route: 048
  3. ZOVIRAX [Concomitant]
     Indication: MOUTH ULCERATION
  4. APHTHASOL [Concomitant]
     Dosage: 5% PASTE
  5. LIPITOR [Concomitant]
     Dosage: 10 MG EVERY THREE DAYS
     Route: 048
  6. NORPACE [Concomitant]
     Dosage: 200 MG, BID
     Route: 048
  7. FOLVITE [Concomitant]
     Dosage: 1 MG, QD
     Route: 048
  8. MAG-OX [Concomitant]
     Dosage: 400 MG, BID
     Route: 048

REACTIONS (10)
  - Inguinal hernia [Unknown]
  - Biopsy bone marrow [Unknown]
  - Dehydration [Unknown]
  - Loss of consciousness [Unknown]
  - Diarrhoea [Unknown]
  - Syncope [Unknown]
  - Abdominal discomfort [Unknown]
  - Vomiting [Unknown]
  - Back pain [Unknown]
  - Pain in extremity [Unknown]
